FAERS Safety Report 10884989 (Version 1)
Quarter: 2015Q1

REPORT INFORMATION
  Report Type: Spontaneous
  Country: US (occurrence: US)
  Receive Date: 20150304
  Receipt Date: 20150304
  Transmission Date: 20150721
  Serious: Yes (Other)
  Sender: FDA-Public Use
  Company Number: US-PFIZER INC-2015075178

PATIENT
  Sex: Female

DRUGS (4)
  1. XALATAN [Suspect]
     Active Substance: LATANOPROST
     Dosage: UNK
  2. LYRICA [Suspect]
     Active Substance: PREGABALIN
     Dosage: UNK
  3. NEURONTIN [Suspect]
     Active Substance: GABAPENTIN
     Dosage: UNK
  4. CELEBREX [Suspect]
     Active Substance: CELECOXIB
     Dosage: UNK

REACTIONS (3)
  - Weight decreased [Unknown]
  - Dizziness [Unknown]
  - Alopecia [Unknown]
